FAERS Safety Report 16259393 (Version 1)
Quarter: 2019Q2

REPORT INFORMATION
  Report Type: Spontaneous
  Country: SE (occurrence: SE)
  Receive Date: 20190501
  Receipt Date: 20190501
  Transmission Date: 20190711
  Serious: Yes (Hospitalization)
  Sender: FDA-Public Use
  Company Number: SE-TEVA-2019-SE-1044099

PATIENT
  Age: 46 Year
  Sex: Female

DRUGS (1)
  1. DIMOR [Suspect]
     Active Substance: LOPERAMIDE
     Dosage: 200 MILLIGRAM DAILY; 200 MG IN ONE DAY
     Route: 048
     Dates: start: 20110830, end: 20110830

REACTIONS (4)
  - Intentional overdose [Unknown]
  - Fatigue [Unknown]
  - Dyspnoea [Unknown]
  - Intentional self-injury [Unknown]

NARRATIVE: CASE EVENT DATE: 20110830
